FAERS Safety Report 8317079 (Version 5)
Quarter: 2017Q3

REPORT INFORMATION
  Report Type: Report from Study
  Country: US (occurrence: US)
  Receive Date: 20111230
  Receipt Date: 20170814
  Transmission Date: 20171128
  Serious: Yes (Hospitalization)
  Sender: FDA-Public Use
  Company Number: US-ROCHE-1024411

PATIENT
  Age: 75 Year
  Sex: Female
  Weight: 62 kg

DRUGS (8)
  1. BEVACIZUMAB. [Suspect]
     Active Substance: BEVACIZUMAB
     Indication: FALLOPIAN TUBE CANCER
     Dosage: 15 MG/KG IV OVER 30-90 MINUTES ON DAY 1
     Route: 042
     Dates: start: 20111130
  2. FOSBRETABULIN [Suspect]
     Active Substance: FOSBRETABULIN
     Indication: FALLOPIAN TUBE CANCER
     Dosage: OVER 10 MINUTES ON DAY 1
     Route: 042
     Dates: start: 20111130
  3. SYNTHROID [Concomitant]
     Active Substance: LEVOTHYROXINE SODIUM
  4. TRAZODONE [Concomitant]
     Active Substance: TRAZODONE HYDROCHLORIDE
  5. WARFARIN [Concomitant]
     Active Substance: WARFARIN
  6. NEURONTIN [Concomitant]
     Active Substance: GABAPENTIN
  7. DIGOXIN. [Concomitant]
     Active Substance: DIGOXIN
  8. PROZAC [Concomitant]
     Active Substance: FLUOXETINE HYDROCHLORIDE

REACTIONS (7)
  - Fatigue [Recovered/Resolved]
  - Ataxia [Recovered/Resolved]
  - Cognitive disorder [Recovered/Resolved]
  - Left ventricular dysfunction [Recovered/Resolved]
  - Myocardial infarction [Recovered/Resolved]
  - Electrocardiogram QT prolonged [Recovered/Resolved]
  - Troponin I increased [Recovered/Resolved]

NARRATIVE: CASE EVENT DATE: 20111130
